FAERS Safety Report 6038370-3 (Version None)
Quarter: 2009Q1

REPORT INFORMATION
  Report Type: 
  Country: None (occurrence: None)
  Receive Date: 20090113
  Receipt Date: 20080815
  Transmission Date: 20090719
  Serious: Yes (Life-Threatening, Hospitalization, Other)
  Sender: FDA-Public Use
  Company Number: 08-001354

PATIENT
  Age: 22 Year
  Sex: Female
  Weight: 101.6 kg

DRUGS (1)
  1. FEMCON FE [Suspect]
     Indication: CONTRACEPTION
     Dosage: 35/400UG, QD, ORAL
     Route: 048
     Dates: start: 20080403, end: 20080808

REACTIONS (1)
  - MYOCARDIAL INFARCTION [None]
